FAERS Safety Report 17710934 (Version 1)
Quarter: 2020Q2

REPORT INFORMATION
  Report Type: Spontaneous
  Country: US (occurrence: US)
  Receive Date: 20200427
  Receipt Date: 20200427
  Transmission Date: 20200714
  Serious: No
  Sender: FDA-Public Use
  Company Number: NVSC2020US111659

PATIENT
  Age: 25 Year
  Sex: Male

DRUGS (2)
  1. SIGNIFOR LAR [Suspect]
     Active Substance: PASIREOTIDE PAMOATE
     Indication: GIGANTISM
  2. SIGNIFOR LAR [Suspect]
     Active Substance: PASIREOTIDE PAMOATE
     Indication: ACROMEGALY
     Dosage: 40 MG, Q4W
     Route: 030

REACTIONS (3)
  - Nausea [Unknown]
  - Vomiting [Unknown]
  - Diarrhoea [Unknown]
